FAERS Safety Report 14790300 (Version 1)
Quarter: 2018Q2

REPORT INFORMATION
  Report Type: Spontaneous
  Country: DE (occurrence: DE)
  Receive Date: 20180423
  Receipt Date: 20180423
  Transmission Date: 20180711
  Serious: Yes (Life-Threatening, Hospitalization)
  Sender: FDA-Public Use
  Company Number: DE-BAYER-2018-072531

PATIENT
  Age: 81 Year
  Sex: Male

DRUGS (8)
  1. ACETYLSALICYLIC ACID({=100 MG) [Suspect]
     Active Substance: ASPIRIN
     Dosage: 100 MG, UNK; 100MG ACCORDING TO INR;
     Route: 048
  2. METOPROLOL. [Concomitant]
     Active Substance: METOPROLOL
     Dosage: 23.75 MG, BID
     Route: 048
  3. ENALAPRIL [Suspect]
     Active Substance: ENALAPRIL
     Dosage: ACCORDING TO INR ();
     Route: 048
  4. AMIODARON [Concomitant]
     Active Substance: AMIODARONE
     Dosage: 100 MG, OM
     Route: 048
  5. PANTOPRAZOLE [Concomitant]
     Active Substance: PANTOPRAZOLE
     Dosage: 40 MG, BID
     Route: 048
  6. RAMIPRIL. [Concomitant]
     Active Substance: RAMIPRIL
     Dosage: 2.5 MG, OM
     Route: 048
  7. PHENPROCOUMON [Suspect]
     Active Substance: PHENPROCOUMON
     Dosage: 3 MG, UNK; 3MG ACCORDING TO INR;
     Route: 048
  8. TORASEMID [Concomitant]
     Active Substance: TORSEMIDE
     Dosage: 10 MG, OM
     Route: 048

REACTIONS (3)
  - Dyspnoea [Unknown]
  - Cough [Unknown]
  - Traumatic haemothorax [Unknown]
